FAERS Safety Report 6539571-8 (Version None)
Quarter: 2010Q1

REPORT INFORMATION
  Report Type: 
  Country: None (occurrence: None)
  Receive Date: 20100115
  Receipt Date: 20100112
  Transmission Date: 20100710
  Serious: Yes (Hospitalization, Other)
  Sender: FDA-Public Use
  Company Number: B0626104A

PATIENT
  Age: 33 Year
  Sex: Female

DRUGS (1)
  1. AUGMENTIN [Suspect]
     Indication: PROPHYLAXIS
     Route: 065
     Dates: start: 20091118, end: 20091119

REACTIONS (4)
  - DRUG EXPOSURE DURING PREGNANCY [None]
  - PRURITUS [None]
  - RASH [None]
  - TOXIC SKIN ERUPTION [None]
